FAERS Safety Report 9718446 (Version 1)
Quarter: 2013Q4

REPORT INFORMATION
  Report Type: Spontaneous
  Country: US (occurrence: US)
  Receive Date: 20131125
  Receipt Date: 20131125
  Transmission Date: 20140711
  Serious: No
  Sender: FDA-Public Use
  Company Number: US-VIVUS-2013V1000570

PATIENT
  Age: 43 Year
  Sex: Female
  Weight: 90.8 kg

DRUGS (1)
  1. QSYMIA 3.75MG/23MG [Suspect]
     Indication: OBESITY
     Route: 048
     Dates: start: 201307, end: 20130712

REACTIONS (6)
  - Vision blurred [Recovered/Resolved]
  - Heart rate increased [Recovered/Resolved]
  - Headache [Recovered/Resolved]
  - Fatigue [Unknown]
  - Insomnia [Recovered/Resolved]
  - Feeling abnormal [Unknown]
